FAERS Safety Report 4642017-8 (Version None)
Quarter: 2005Q2

REPORT INFORMATION
  Report Type: 
  Country: None (occurrence: None)
  Receive Date: 20050420
  Receipt Date: 20050407
  Transmission Date: 20051028
  Serious: Yes (Other)
  Sender: FDA-Public Use
  Company Number: 2005056467

PATIENT
  Age: 63 Year
  Sex: Male
  Weight: 106.5953 kg

DRUGS (2)
  1. ZITHROMAX [Suspect]
     Indication: PREOPERATIVE CARE
     Dosage: 250 MG ORAL
     Route: 048
     Dates: start: 20050301, end: 20050402
  2. VITAMINS (VITAMINS) [Concomitant]

REACTIONS (3)
  - DIZZINESS [None]
  - PROCTALGIA [None]
  - RECTAL HAEMORRHAGE [None]
